FAERS Safety Report 15308955 (Version 2)
Quarter: 2018Q4

REPORT INFORMATION
  Report Type: Report from Study
  Country: US (occurrence: US)
  Receive Date: 20180823
  Receipt Date: 20181217
  Transmission Date: 20190204
  Serious: Yes (Other)
  Sender: FDA-Public Use
  Company Number: US-AMGEN-USASL2018116088

PATIENT
  Age: 68 Year
  Sex: Male

DRUGS (4)
  1. ENBREL [Suspect]
     Active Substance: ETANERCEPT
     Indication: OSTEOARTHRITIS
     Dosage: 50 MG, QWK
     Route: 065
     Dates: start: 201807, end: 2018
  2. ENBREL [Suspect]
     Active Substance: ETANERCEPT
     Dosage: 50 MG, 2 TIMES/WK
     Route: 065
     Dates: start: 201811
  3. ENBREL [Suspect]
     Active Substance: ETANERCEPT
     Dosage: 50 MG EVERY 6 DAYS
     Route: 065
     Dates: start: 2018, end: 201811
  4. ENBREL [Suspect]
     Active Substance: ETANERCEPT
     Indication: RHEUMATOID ARTHRITIS
     Dosage: 50 MG, 2 TIMES/WK
     Route: 065
     Dates: start: 20180328, end: 201806

REACTIONS (6)
  - Rheumatoid arthritis [Unknown]
  - Drug effect decreased [Unknown]
  - Bronchitis [Recovering/Resolving]
  - Rash [Unknown]
  - Influenza like illness [Unknown]
  - Depressed mood [Unknown]

NARRATIVE: CASE EVENT DATE: 2018
